FAERS Safety Report 9627031 (Version 2)
Quarter: 2013Q4

REPORT INFORMATION
  Report Type: Spontaneous
  Country: US (occurrence: US)
  Receive Date: 20131016
  Receipt Date: 20131101
  Transmission Date: 20140711
  Serious: Yes (Other)
  Sender: FDA-Public Use
  Company Number: US-PFIZER INC-2013297169

PATIENT
  Age: 47 Year
  Sex: Female
  Weight: 70.3 kg

DRUGS (2)
  1. PRISTIQ [Suspect]
     Indication: DEPRESSION
     Dosage: 50 MG, 1X/DAY
     Route: 048
     Dates: start: 2008
  2. PRISTIQ [Suspect]
     Dosage: UNK, 1X/DAY
     Route: 048

REACTIONS (2)
  - Adverse event [Unknown]
  - Adverse event [Unknown]
